FAERS Safety Report 7569389-9 (Version None)
Quarter: 2011Q2

REPORT INFORMATION
  Report Type: 
  Country: None (occurrence: None)
  Receive Date: 20110623
  Receipt Date: 20110615
  Transmission Date: 20111010
  Serious: Yes (Hospitalization)
  Sender: FDA-Public Use
  Company Number: US-MERCK-1106USA01958

PATIENT
  Age: 83 Year
  Sex: Female

DRUGS (1)
  1. COZAAR [Suspect]
     Indication: ASTHENIA
     Route: 048
     Dates: start: 20101201, end: 20110317

REACTIONS (6)
  - DYSPNOEA [None]
  - BACK DISORDER [None]
  - COUGH [None]
  - SWELLING [None]
  - CHEST PAIN [None]
  - DRUG HYPERSENSITIVITY [None]
